FAERS Safety Report 17196662 (Version 1)
Quarter: 2019Q4

REPORT INFORMATION
  Report Type: Spontaneous
  Country: FR (occurrence: FR)
  Receive Date: 20191224
  Receipt Date: 20191224
  Transmission Date: 20200122
  Serious: Yes (Life-Threatening)
  Sender: FDA-Public Use
  Company Number: FR-PFIZER INC-2019549522

PATIENT
  Age: 58 Year
  Sex: Male
  Weight: 96 kg

DRUGS (3)
  1. SUFENTANIL MYLAN [Suspect]
     Active Substance: SUFENTANIL
     Indication: INDUCTION OF ANAESTHESIA
     Dosage: 1 DF, SINGLE
     Route: 041
     Dates: start: 20191011, end: 20191011
  2. ATRACURIUM BESILATE [Suspect]
     Active Substance: ATRACURIUM BESYLATE
     Indication: INDUCTION OF ANAESTHESIA
     Dosage: 1 DF, SINGLE
     Route: 041
     Dates: start: 20191011, end: 20191011
  3. PROPOFOL LIPURO [Suspect]
     Active Substance: PROPOFOL
     Indication: INDUCTION OF ANAESTHESIA
     Dosage: 1 DF, SINGLE
     Route: 041
     Dates: start: 20191011, end: 20191011

REACTIONS (1)
  - Anaphylactic shock [Recovered/Resolved]

NARRATIVE: CASE EVENT DATE: 20191011
